FAERS Safety Report 21615025 (Version 5)
Quarter: 2025Q4

REPORT INFORMATION
  Report Type: Report from Study
  Country: JP (occurrence: JP)
  Receive Date: 20221118
  Receipt Date: 20251125
  Transmission Date: 20260117
  Serious: Yes (Other)
  Sender: VIIV
  Company Number: JP-VIIV HEALTHCARE LIMITED-JP2019JPN201178

PATIENT
  Age: 37 Year
  Sex: Male

DRUGS (6)
  1. DOVATO [Suspect]
     Active Substance: DOLUTEGRAVIR SODIUM\LAMIVUDINE
     Indication: HIV infection
     Dosage: 1 DF, 1D
  2. ABACAVIR SULFATE\DOLUTEGRAVIR SODIUM\LAMIVUDINE [Suspect]
     Active Substance: ABACAVIR SULFATE\DOLUTEGRAVIR SODIUM\LAMIVUDINE
     Indication: HIV infection
     Dosage: 1 DF, 1D
  3. VOCABRIA [Suspect]
     Active Substance: CABOTEGRAVIR SODIUM
     Indication: HIV infection
     Dosage: 1 DF
  4. VOCABRIA [Suspect]
     Active Substance: CABOTEGRAVIR SODIUM
     Indication: HIV infection
     Dosage: 600 MG
  5. RILPIVIRINE [Suspect]
     Active Substance: RILPIVIRINE
     Indication: HIV infection
     Dosage: 900 MG
  6. EDURANT [Suspect]
     Active Substance: RILPIVIRINE HYDROCHLORIDE
     Indication: HIV infection
     Dosage: 1 DF

REACTIONS (8)
  - Blood triglycerides increased [Recovered/Resolved]
  - Low density lipoprotein increased [Recovered/Resolved]
  - Hyperuricaemia [Not Recovered/Not Resolved]
  - Syphilis [Recovering/Resolving]
  - Dermatitis contact [Recovering/Resolving]
  - Musculoskeletal pain [Not Recovered/Not Resolved]
  - Incorrect product administration duration [Unknown]
  - Off label use [Unknown]

NARRATIVE: CASE EVENT DATE: 20240805
